FAERS Safety Report 6169418-3 (Version None)
Quarter: 2009Q2

REPORT INFORMATION
  Report Type: 
  Country: None (occurrence: None)
  Receive Date: 20090428
  Receipt Date: 20090108
  Transmission Date: 20091009
  Serious: Yes (Other)
  Sender: FDA-Public Use
  Company Number: PHHO2009CA05223

PATIENT
  Sex: Female
  Weight: 44.7 kg

DRUGS (9)
  1. SIMULECT [Suspect]
     Indication: RENAL TRANSPLANT
     Dosage: 20MG
     Route: 042
     Dates: start: 20070206
  2. MYCOPHENOLATE MOFETIL [Suspect]
     Indication: RENAL TRANSPLANT
     Dosage: 1000 MG, BID
     Route: 048
     Dates: start: 20070206
  3. TACROLIMUS [Suspect]
     Indication: RENAL TRANSPLANT
  4. PREDNISONE TAB [Concomitant]
  5. EPREX [Concomitant]
  6. FOLIC ACID [Concomitant]
  7. ATACAND [Concomitant]
  8. SEPTRA [Concomitant]
  9. VALCYTE [Concomitant]

REACTIONS (3)
  - ANAEMIA [None]
  - APLASIA PURE RED CELL [None]
  - VIRAL INFECTION [None]
